FAERS Safety Report 18525976 (Version 2)
Quarter: 2024Q3

REPORT INFORMATION
  Report Type: Spontaneous
  Country: BG (occurrence: BG)
  Receive Date: 20201120
  Receipt Date: 20240827
  Transmission Date: 20241017
  Serious: Yes (Death, Other)
  Sender: TEVA
  Company Number: BG-EMA-DD-20201104-KUMARVN_P-101613

PATIENT
  Age: 19 Year
  Sex: Male

DRUGS (33)
  1. DEXAMETHASONE [Suspect]
     Active Substance: DEXAMETHASONE
     Indication: Product used for unknown indication
     Dosage: 4 MG/1 ML - 2X2 AMP
     Route: 065
     Dates: start: 2020
  2. VANCOCIN [Suspect]
     Active Substance: VANCOMYCIN HYDROCHLORIDE
     Indication: Product used for unknown indication
     Dosage: DOSAGE TEXT: 2X1.0  (UNIT DOSE: 1 GRAM), VIAL
     Route: 065
     Dates: start: 2020
  3. AZITHROMYCIN [Suspect]
     Active Substance: AZITHROMYCIN
     Indication: Product used for unknown indication
     Route: 065
     Dates: start: 2020
  4. MIDAZOLAM [Suspect]
     Active Substance: MIDAZOLAM
     Indication: Product used for unknown indication
     Dosage: DOSAGE TEXT: 5 MG - 5 5 ML - IN PERFUSION, AMP
     Route: 065
     Dates: start: 2020
  5. METAMIZOLE [Suspect]
     Active Substance: METAMIZOLE
     Indication: Product used for unknown indication
     Dosage: X 2 CAPS?AMP. 500MG/ML 2 ML
     Route: 065
     Dates: start: 2020
  6. MEROPENEM [Suspect]
     Active Substance: MEROPENEM
     Indication: Product used for unknown indication
     Dosage: DOSAGE TEXT: VIAL, 3X1.0  (1 GRAM)
     Route: 065
     Dates: start: 2020
  7. AZITHROMYCIN [Suspect]
     Active Substance: AZITHROMYCIN
     Indication: Product used for unknown indication
     Dosage: DOSAGE TEXT: 500 MG, VIAL
     Route: 065
     Dates: start: 2020
  8. FAMOTIDINE [Suspect]
     Active Substance: FAMOTIDINE
     Indication: Product used for unknown indication
     Dosage: DOSAGE TEXT: AMP, 2X1 VIAL  (20 MG)
     Route: 065
     Dates: start: 2020
  9. ACETAMINOPHEN [Suspect]
     Active Substance: ACETAMINOPHEN
     Indication: Product used for unknown indication
     Dosage: 10 MG/ML
     Route: 065
     Dates: start: 2020
  10. FUROSEMIDE [Suspect]
     Active Substance: FUROSEMIDE
     Indication: Product used for unknown indication
     Dosage: DOSAGE TEXT: AMP, 10 MG/ML - AS PRESCRIBED
     Route: 065
     Dates: start: 2020
  11. ENOXAPARIN SODIUM [Suspect]
     Active Substance: ENOXAPARIN SODIUM
     Indication: Product used for unknown indication
     Dosage: DOSAGE TEXT: 60 MG/0.60 ML - X1VIAL, AMP
     Route: 065
     Dates: start: 2020
  12. METHYLPREDNISOLONE [Suspect]
     Active Substance: METHYLPREDNISOLONE
     Indication: Product used for unknown indication
     Dosage: DOSAGE TEXT: AMP, 40 MG / 2 ML
     Route: 065
     Dates: start: 2020
  13. NADROPARIN CALCIUM [Suspect]
     Active Substance: NADROPARIN CALCIUM
     Indication: Product used for unknown indication
     Dosage: DOSAGE TEXT: 1 VIAL MG/ML AS PRESCRIBED ,  (0.6 ML)
     Route: 065
     Dates: start: 2020
  14. MELOXICAM\PRIDINOL MESILATE [Suspect]
     Active Substance: MELOXICAM\PRIDINOL MESILATE
     Indication: Product used for unknown indication
     Dosage: DOSAGE TEXT: 5 MG/ML (UNIT DOSE: 100ML)
     Route: 065
     Dates: start: 2020
  15. CALCIUM CHLORIDE\MAGNESIUM CHLORIDE\POTASSIUM CHLORIDE\SODIUM ACETATE\ [Suspect]
     Active Substance: CALCIUM CHLORIDE\MAGNESIUM CHLORIDE\POTASSIUM CHLORIDE\SODIUM ACETATE\SODIUM CHLORIDE
     Indication: Product used for unknown indication
     Dosage: DOSAGE TEXT: 500 L - ECO-VIAL - X500 ML
     Route: 065
     Dates: start: 2020
  16. CALCIUM GLUCONATE [Suspect]
     Active Substance: CALCIUM GLUCONATE
     Indication: Product used for unknown indication
     Dosage: DOSAGE TEXT: 8.94 MG/ML - 10 ML - 2X1 AMP
     Route: 065
     Dates: start: 2020
  17. DEXTROSE [Suspect]
     Active Substance: DEXTROSE\DEXTROSE MONOHYDRATE
     Indication: Product used for unknown indication
     Dosage: DOSAGE TEXT: BY PRESCRIPTION, UNIT DOSE: 500 ML
     Route: 042
  18. CITICOLINE [Suspect]
     Active Substance: CITICOLINE
     Indication: Product used for unknown indication
     Dosage: DOSAGE TEXT: 1000 MG 4 ML 2X1 AMP, SOMAZINA [CITICOLINE]
     Route: 065
     Dates: start: 2020
  19. CLONIDINE HYDROCHLORIDE [Suspect]
     Active Substance: CLONIDINE HYDROCHLORIDE
     Indication: Product used for unknown indication
     Dosage: 0.15 MG/ML - AS PRESCRIBED, AMP
     Route: 065
     Dates: start: 2020
  20. ALBUMIN HUMAN [Suspect]
     Active Substance: ALBUMIN HUMAN
     Indication: Product used for unknown indication
     Dosage: TIME INTERVAL: TOTAL
     Route: 065
     Dates: start: 2020
  21. DIETARY SUPPLEMENT\HERBALS\MILK THISTLE [Suspect]
     Active Substance: MILK THISTLE
     Indication: Product used for unknown indication
     Dosage: 90 MG * 30 PCS. - ACCORDING TO THE SCHEME
     Route: 065
     Dates: start: 2020
  22. TOCILIZUMAB [Suspect]
     Active Substance: TOCILIZUMAB
     Indication: COVID-19 pneumonia
     Dosage: DOSAGE TEXT: 200 MG/20ML
     Route: 065
     Dates: start: 20200101
  23. MEROPENEM [Suspect]
     Active Substance: MEROPENEM
     Indication: Product used for unknown indication
     Dosage: DOSAGE TEXT: 3X1.0, UNIT DOSE: 1000 MG, VIAL
     Route: 065
  24. ESOMEPRAZOLE [Suspect]
     Active Substance: ESOMEPRAZOLE
     Indication: Product used for unknown indication
     Dosage: 2X1 VIAL
     Route: 065
     Dates: start: 2020
  25. VITAMIN C [Suspect]
     Active Substance: ASCORBIC ACID
     Indication: Product used for unknown indication
     Dosage: DOSAGE TEXT: AMPOULE, 10 5 5 ML 2X4 AMP, VITAMIN C [ASCORBIC ACID]
     Route: 065
     Dates: start: 2020
  26. FLUCONAZOLE [Suspect]
     Active Substance: FLUCONAZOLE
     Indication: Product used for unknown indication
     Dosage: DOSAGE TEXT: 2 MG/1 ML - 100 ML - X 2 VIAL
     Route: 065
     Dates: start: 2020
  27. AMINO ACIDS\DEXTROSE\ELECTROLYTES NOS\SOYBEAN OIL [Suspect]
     Active Substance: AMINO ACIDS\DEXTROSE\ELECTROLYTES NOS\SOYBEAN OIL
     Indication: Product used for unknown indication
     Dosage: DOSAGE TEXT: 875 ML - 2 PCS
     Route: 065
     Dates: start: 2020
  28. SINEQUAN [Suspect]
     Active Substance: DOXEPIN HYDROCHLORIDE
     Indication: Product used for unknown indication
     Dosage: DOSAGE TEXT: X 2 CAPS
     Route: 065
     Dates: start: 2020
  29. METOCLOPRAMIDE HYDROCHLORIDE [Suspect]
     Active Substance: METOCLOPRAMIDE HYDROCHLORIDE
     Indication: Product used for unknown indication
     Dosage: DOSAGE TEXT: AMP, 10 MG - 2 ML - AS PRESCRIBED
     Route: 065
     Dates: start: 2020
  30. SODIUM CHLORIDE [Suspect]
     Active Substance: SODIUM CHLORIDE
     Indication: Product used for unknown indication
     Dosage: DOSAGE TEXT: 100 ML ECO-BOTTLE BY PRESCRIPTION, UNIT DOSE: 0.9 PERCENT
     Route: 065
     Dates: start: 2020
  31. SACCHAROMYCES CEREVISIAE [Suspect]
     Active Substance: SACCHAROMYCES CEREVISIAE
     Indication: Product used for unknown indication
     Dosage: DOSAGE TEXT: 250 MG * 10 - 2X2 CAPS, ENTEROL [SACCHAROMYCES BOULARDII]
     Route: 065
     Dates: start: 2020
  32. CHLOROQUINE PHOSPHATE [Suspect]
     Active Substance: CHLOROQUINE PHOSPHATE
     Indication: Product used for unknown indication
     Dosage: 2X1 TABLETS
     Route: 065
     Dates: start: 2020
  33. BROMHEXINE [Suspect]
     Active Substance: BROMHEXINE
     Indication: Product used for unknown indication
     Dosage: DOSAGE TEXT: AMP, 4 MG 2 ML - AS PRESCRIBED
     Route: 065
     Dates: start: 2020

REACTIONS (13)
  - Acute respiratory failure [Fatal]
  - Off label use [Unknown]
  - Brain oedema [Fatal]
  - Tachypnoea [Fatal]
  - Cardiovascular insufficiency [Fatal]
  - Hypoxia [Fatal]
  - Embolism [Fatal]
  - Confusional state [Fatal]
  - Hallucination [Fatal]
  - Pulmonary oedema [Fatal]
  - Hypertension [Fatal]
  - COVID-19 pneumonia [Fatal]
  - Encephalopathy [Fatal]

NARRATIVE: CASE EVENT DATE: 20200101
